FAERS Safety Report 16335771 (Version 1)
Quarter: 2019Q2

REPORT INFORMATION
  Report Type: Spontaneous
  Country: BR (occurrence: BR)
  Receive Date: 20190521
  Receipt Date: 20190521
  Transmission Date: 20190711
  Serious: Yes (Other)
  Sender: FDA-Public Use
  Company Number: BR-ABBVIE-19P-020-2789671-00

PATIENT
  Sex: Male
  Weight: 74 kg

DRUGS (4)
  1. SYNTHROID [Suspect]
     Active Substance: LEVOTHYROXINE SODIUM
     Dosage: IN THE MORNING (FASTING); ONGOING
     Route: 048
  2. SYNTHROID [Suspect]
     Active Substance: LEVOTHYROXINE SODIUM
     Dosage: IN THE MORNING (FASTING);
     Route: 048
  3. SYNTHROID [Suspect]
     Active Substance: LEVOTHYROXINE SODIUM
     Dosage: IN THE MORNING (FASTING);
     Route: 048
  4. SYNTHROID [Suspect]
     Active Substance: LEVOTHYROXINE SODIUM
     Indication: THYROID THERAPY
     Dosage: IN THE MORNING (FASTING);
     Route: 048
     Dates: start: 20090501, end: 201401

REACTIONS (2)
  - Tremor [Not Recovered/Not Resolved]
  - Torticollis [Unknown]

NARRATIVE: CASE EVENT DATE: 2013
